FAERS Safety Report 6551314-0 (Version None)
Quarter: 2010Q1

REPORT INFORMATION
  Report Type: 
  Country: None (occurrence: None)
  Receive Date: 20100120
  Receipt Date: 20100107
  Transmission Date: 20100710
  Serious: Yes (Other)
  Sender: FDA-Public Use
  Company Number: 2010SP001719

PATIENT
  Sex: Male

DRUGS (1)
  1. REMERON [Suspect]
     Indication: BURNOUT SYNDROME
     Dosage: 45 MG; 30 MG

REACTIONS (2)
  - DISTURBANCE IN ATTENTION [None]
  - MEMORY IMPAIRMENT [None]
